FAERS Safety Report 4479144-4 (Version None)
Quarter: 2004Q4

REPORT INFORMATION
  Report Type: 
  Country: None (occurrence: None)
  Receive Date: 20040923
  Receipt Date: 20040629
  Transmission Date: 20050328
  Serious: No
  Sender: FDA-Public Use
  Company Number: 207516

PATIENT
  Age: 63 Year
  Sex: Male
  Weight: 68.5 kg

DRUGS (3)
  1. AVASTIN [Suspect]
     Indication: COLORECTAL CANCER METASTATIC
     Dosage: INTRAVENOUS
     Route: 042
     Dates: start: 20040519
  2. FLUOROURACIL [Concomitant]
  3. LEUCOVORIN (LEUCOVORIN HYDROCHLORIDE) [Concomitant]

REACTIONS (1)
  - ADRENAL DISORDER [None]
